FAERS Safety Report 6389788-0 (Version None)
Quarter: 2009Q4

REPORT INFORMATION
  Report Type: 
  Country: None (occurrence: None)
  Receive Date: 20091006
  Receipt Date: 20090925
  Transmission Date: 20100525
  Serious: Yes (Other)
  Sender: FDA-Public Use
  Company Number: US-JNJFOC-20090504996

PATIENT
  Sex: Female
  Weight: 65.32 kg

DRUGS (36)
  1. REMICADE [Suspect]
     Dosage: ALSO REPORTED AS 10 MG
     Route: 042
     Dates: end: 20090422
  2. REMICADE [Suspect]
     Dosage: ALSO REPORTED AS 10 MG
     Route: 042
     Dates: end: 20090422
  3. REMICADE [Suspect]
     Dosage: ALSO REPORTED AS 10 MG
     Route: 042
     Dates: end: 20090422
  4. REMICADE [Suspect]
     Indication: RHEUMATOID ARTHRITIS
     Dosage: ALSO REPORTED AS 10 MG
     Route: 042
     Dates: end: 20090422
  5. REMICADE [Suspect]
     Indication: CROHN'S DISEASE
     Dosage: ALSO REPORTED AS 10 MG
     Route: 042
     Dates: end: 20090422
  6. METHOTREXATE [Suspect]
     Indication: RHEUMATOID ARTHRITIS
     Route: 048
  7. METHOTREXATE [Suspect]
     Indication: CROHN'S DISEASE
     Route: 048
  8. ACYCLOVIR [Concomitant]
     Route: 048
  9. ALBUTEROL [Concomitant]
     Indication: COUGH
  10. ALPRAZOLAM [Concomitant]
     Indication: PREMEDICATION
     Route: 048
  11. AZELAIC ACID [Concomitant]
  12. CALCIUM AND VITAMIN D [Concomitant]
     Route: 048
  13. CYANOCOBALAMIN [Concomitant]
     Route: 030
  14. MULTIPLE VITAMIN [Concomitant]
     Route: 048
  15. DULOXETINE [Concomitant]
     Indication: HEADACHE
     Route: 048
  16. RELPAX [Concomitant]
     Indication: HEADACHE
     Route: 048
  17. ESTRADIOL [Concomitant]
     Route: 061
  18. ESTRADIOL [Concomitant]
     Route: 067
  19. FLUCONAZOLE [Concomitant]
     Route: 048
  20. FLUTICASONE [Concomitant]
  21. FOLIC ACID [Concomitant]
     Route: 048
  22. SOLU-MEDROL [Concomitant]
     Indication: PREMEDICATION
     Route: 042
  23. PANTOPRAZOLE SODIUM [Concomitant]
     Route: 048
  24. PROMETHAZINE [Concomitant]
     Route: 048
  25. COENZYME Q10 [Concomitant]
     Route: 048
  26. QUESTRAN [Concomitant]
     Route: 048
  27. RIFAXIMIN [Concomitant]
     Indication: PROPHYLAXIS
     Route: 048
  28. SENNA [Concomitant]
     Route: 048
  29. SENNA [Concomitant]
     Route: 048
  30. VANCOMYCIN [Concomitant]
     Route: 048
  31. BENEFIBER [Concomitant]
     Route: 048
  32. ZOLPIDEM [Concomitant]
     Route: 048
  33. SULFACETAMIDE SODIUM [Concomitant]
  34. KENALOG [Concomitant]
  35. ACIDOPHILUS [Concomitant]
     Route: 048
  36. FEXOFENADINE [Concomitant]
     Route: 048

REACTIONS (7)
  - ADRENAL INSUFFICIENCY [None]
  - ANORECTAL DISORDER [None]
  - DIARRHOEA [None]
  - DYSPHONIA [None]
  - DYSPNOEA [None]
  - MYCOBACTERIUM AVIUM COMPLEX INFECTION [None]
  - NAUSEA [None]
